FAERS Safety Report 4664232-X (Version None)
Quarter: 2005Q2

REPORT INFORMATION
  Report Type: 
  Country: None (occurrence: None)
  Receive Date: 20050516
  Receipt Date: 20050516
  Transmission Date: 20051028
  Serious: Yes (Hospitalization)
  Sender: FDA-Public Use
  Company Number: None

PATIENT
  Age: 65 Year
  Sex: Female
  Weight: 68.9467 kg

DRUGS (2)
  1. INTRON A [Suspect]
     Indication: HEPATITIS C
     Dosage: 0.4 ML  WEEKLY   SUBCUTANEO
     Route: 058
     Dates: start: 20050104, end: 20050215
  2. RIBAVIRIN [Suspect]
     Indication: HEPATITIS C
     Dosage: 2 CAPSULES  Q AM+2 Q PM   ORAL
     Route: 048
     Dates: start: 20050104, end: 20050215

REACTIONS (7)
  - ANOREXIA [None]
  - ANXIETY [None]
  - DECREASED ACTIVITY [None]
  - DEHYDRATION [None]
  - INSOMNIA [None]
  - MALAISE [None]
  - NAUSEA [None]
